FAERS Safety Report 5059369-X (Version None)
Quarter: 2006Q2

REPORT INFORMATION
  Report Type: 
  Country: None (occurrence: None)
  Receive Date: 20060629
  Receipt Date: 20060210
  Transmission Date: 20061013
  Serious: No
  Sender: FDA-Public Use
  Company Number: PHEH2006US02054

PATIENT
  Age: 85 Year
  Sex: Male

DRUGS (2)
  1. ENABLEX [Suspect]
     Indication: URINARY INCONTINENCE
     Dosage: 7.5 MG, QD;  15 MG, QD
     Dates: start: 20060131
  2. ENABLEX [Suspect]
     Indication: URINARY INCONTINENCE
     Dosage: 7.5 MG, QD;  15 MG, QD
     Dates: start: 20060206

REACTIONS (2)
  - ABNORMAL DREAMS [None]
  - ENURESIS [None]
